FAERS Safety Report 18350649 (Version 1)
Quarter: 2020Q4

REPORT INFORMATION
  Report Type: Spontaneous
  Country: RU (occurrence: RU)
  Receive Date: 20201006
  Receipt Date: 20201006
  Transmission Date: 20210114
  Serious: Yes (Other)
  Sender: FDA-Public Use
  Company Number: RU-BAYER-2020-208275

PATIENT
  Age: 31 Year
  Sex: Female
  Weight: 55 kg

DRUGS (6)
  1. AZATHIOPRINE. [Concomitant]
     Active Substance: AZATHIOPRINE
     Indication: COLITIS ULCERATIVE
     Dosage: 50 MG, BID
     Route: 048
     Dates: start: 20200831
  2. YAZ [Suspect]
     Active Substance: DROSPIRENONE\ETHINYL ESTRADIOL
     Indication: CONTRACEPTION
     Dosage: UNK
     Route: 048
  3. PREDNISOLONE. [Suspect]
     Active Substance: PREDNISOLONE
     Indication: COLITIS ULCERATIVE
     Dosage: 30 MG, QD
     Route: 042
     Dates: start: 20200911, end: 20200914
  4. PREDNISOLONE. [Suspect]
     Active Substance: PREDNISOLONE
     Indication: COLITIS ULCERATIVE
     Dosage: 90 MG, QD
     Route: 042
     Dates: start: 20200901, end: 20200903
  5. MESALAZINE [Concomitant]
     Active Substance: MESALAMINE
     Indication: COLITIS ULCERATIVE
     Dosage: 1000 MG, BID
     Route: 048
     Dates: start: 20200826
  6. PREDNISOLONE. [Suspect]
     Active Substance: PREDNISOLONE
     Indication: COLITIS ULCERATIVE
     Dosage: 60 MG, QD
     Route: 042
     Dates: start: 20200904, end: 20200910

REACTIONS (3)
  - Catheter site pain [None]
  - Thrombophlebitis [Recovering/Resolving]
  - Catheter site swelling [None]

NARRATIVE: CASE EVENT DATE: 20200910
